FAERS Safety Report 21995366 (Version 1)
Quarter: 2023Q1

REPORT INFORMATION
  Report Type: Spontaneous
  Country: US (occurrence: None)
  Receive Date: 20230214
  Receipt Date: 20230214
  Transmission Date: 20230418
  Serious: Yes (Death)
  Sender: FDA-Public Use
  Company Number: None

PATIENT
  Age: 55 Year
  Sex: Female

DRUGS (17)
  1. LOKELMA [Suspect]
     Active Substance: SODIUM ZIRCONIUM CYCLOSILICATE
     Indication: End stage renal disease
     Dosage: OTHER FREQUENCY : NON-DIALYSIS DAYS;?
     Route: 048
     Dates: start: 20220209
  2. LOKELMA [Suspect]
     Active Substance: SODIUM ZIRCONIUM CYCLOSILICATE
     Indication: Hyperkalaemia
  3. aspirin 81mg tablets [Concomitant]
  4. Abilify 10mg tablets [Concomitant]
  5. ALBUTEROL [Concomitant]
     Active Substance: ALBUTEROL
  6. AMBIEN [Concomitant]
     Active Substance: ZOLPIDEM TARTRATE
  7. carvedilol 25mg tablets [Concomitant]
  8. CINACALCET [Concomitant]
     Active Substance: CINACALCET
  9. Clonidine 0.3mg tablets [Concomitant]
  10. Hydralazine 100mg tablets [Concomitant]
  11. LANTUS [Concomitant]
     Active Substance: INSULIN GLARGINE
  12. Levothyroxine 0.05mg tablets [Concomitant]
  13. METHADONE [Concomitant]
     Active Substance: METHADONE HYDROCHLORIDE
  14. NEPHROCAPS [Concomitant]
     Active Substance: ASCORBIC ACID\BIOTIN\CYANOCOBALAMIN\FOLIC ACID\NIACIN\PANTOTHENIC ACID\PYRIDOXINE\RIBOFLAVIN\THIAMIN
  15. Nifedipine 60mg ER tablets [Concomitant]
  16. Nortriptyline 50mg caps [Concomitant]
  17. Protonix 40mg tablets [Concomitant]

REACTIONS (1)
  - Death [None]

NARRATIVE: CASE EVENT DATE: 20230214
